FAERS Safety Report 7360914-X (Version None)
Quarter: 2011Q1

REPORT INFORMATION
  Report Type: 
  Country: None (occurrence: None)
  Receive Date: 20110318
  Receipt Date: 20110120
  Transmission Date: 20110831
  Serious: Yes (Other)
  Sender: FDA-Public Use
  Company Number: US-BAYER-201034894NA

PATIENT
  Sex: Female
  Weight: 103 kg

DRUGS (26)
  1. YAZ [Suspect]
     Indication: PREMENSTRUAL SYNDROME
  2. TRIAMCINOLONE [Concomitant]
     Dosage: 1 %, BID
     Route: 061
     Dates: start: 20080131
  3. ACETAMINOPHEN AND HYDROCODONE BITARTRATE [Concomitant]
     Indication: PAIN
     Dosage: 325 MG, QID
     Route: 048
     Dates: start: 20070920
  4. AMOXICILLIN [Concomitant]
     Dosage: 500 MG, TID
     Route: 048
     Dates: start: 20070918, end: 20090325
  5. AMANTADINE HCL [Concomitant]
     Dosage: UNK
     Route: 048
     Dates: start: 20080116
  6. UNCODEABLE ^UNCLASSIFIABLE^ [Concomitant]
     Dosage: UNK
     Dates: start: 20100414
  7. VENTOLIN HFA [Concomitant]
     Dosage: 90 MCG/2 PUFFS
     Route: 048
     Dates: start: 20090825
  8. METRONIDAZOLE [Concomitant]
     Dosage: 500 MG, BID
     Route: 048
     Dates: start: 20090827
  9. UNCODEABLE ^UNCLASSIFIABLE^ [Concomitant]
     Dosage: UNK
     Route: 067
     Dates: start: 20090914, end: 20090921
  10. MULTI-VITAMINS [Concomitant]
  11. ALBUTEROL [Concomitant]
     Route: 048
  12. YASMIN [Suspect]
     Indication: PREMENSTRUAL SYNDROME
     Dosage: UNK
     Dates: start: 20041201, end: 20080801
  13. NASONEX [Concomitant]
     Route: 045
  14. AMOXICILLIN [Concomitant]
     Dosage: 500 MG, BID
     Route: 048
     Dates: start: 20110111, end: 20110118
  15. UNCODEABLE ^UNCLASSIFIABLE^ [Concomitant]
     Dosage: UNK
     Route: 061
     Dates: start: 20091130
  16. DICYCLOMINE [Concomitant]
     Dosage: 20 MG, QD
     Route: 048
     Dates: start: 20100324
  17. CEPHALEXIN [Concomitant]
     Dosage: 500 MG, QD
     Route: 048
  18. NITROFURANT MACRO [Concomitant]
     Dosage: 100 MG, BID
     Route: 048
  19. MUPIROCIN [Concomitant]
     Dosage: UNK UNK, TID
     Route: 061
     Dates: start: 20100623
  20. IBUPROFEN [Concomitant]
     Indication: PAIN
     Dosage: 200 MG, BID
     Route: 048
  21. FLUTICASONE PROPIONATE [Concomitant]
     Dosage: UNK
     Route: 045
     Dates: start: 20080611
  22. YAZ [Suspect]
     Indication: CONTRACEPTION
     Dosage: UNK
     Dates: start: 20090929
  23. YASMIN [Suspect]
     Indication: CONTRACEPTION
     Dosage: UNK
     Dates: start: 20040301, end: 20060901
  24. ZYRTEC [Concomitant]
     Route: 048
  25. OCELLA [Suspect]
     Dosage: UNK
     Dates: start: 20080901, end: 20091101
  26. UNCODEABLE ^UNCLASSIFIABLE^ [Concomitant]
     Dosage: 10 MG, ONCE
     Route: 054
     Dates: start: 20100414

REACTIONS (2)
  - CHOLELITHIASIS [None]
  - ABDOMINAL PAIN [None]
